FAERS Safety Report 7314363-0 (Version None)
Quarter: 2011Q1

REPORT INFORMATION
  Report Type: 
  Country: None (occurrence: None)
  Receive Date: 20110225
  Receipt Date: 20100907
  Transmission Date: 20110831
  Serious: No
  Sender: FDA-Public Use
  Company Number: US-MYLANLABS-2010S1013985

PATIENT
  Age: 28 Year
  Sex: Female
  Weight: 63.5 kg

DRUGS (7)
  1. AMNESTEEM [Suspect]
     Route: 048
  2. MTX /00113801/ [Concomitant]
  3. AMNESTEEM [Suspect]
     Indication: ACNE
     Route: 048
     Dates: start: 20090218
  4. PREDNISONE [Concomitant]
  5. AMNESTEEM [Suspect]
     Route: 048
     Dates: end: 20100601
  6. SIMPONI [Concomitant]
  7. NORFLEX [Concomitant]

REACTIONS (1)
  - DEPRESSED MOOD [None]
